FAERS Safety Report 7438199-5 (Version None)
Quarter: 2011Q2

REPORT INFORMATION
  Report Type: 
  Country: None (occurrence: None)
  Receive Date: 20110426
  Receipt Date: 20110329
  Transmission Date: 20111010
  Serious: Yes (Hospitalization, Other)
  Sender: FDA-Public Use
  Company Number: US-BAYER-201023566NA

PATIENT
  Age: 30 Year
  Sex: Female
  Weight: 83.9 kg

DRUGS (4)
  1. CYMBALTA [Concomitant]
     Indication: DEPRESSION
  2. YASMIN [Suspect]
     Indication: ORAL CONTRACEPTION
     Route: 048
     Dates: start: 20070501, end: 20080501
  3. EXCEDRIN (MIGRAINE) [Concomitant]
     Indication: HEADACHE
  4. ACETAMINOPHEN [Concomitant]
     Indication: HEADACHE

REACTIONS (2)
  - PULMONARY EMBOLISM [None]
  - PULMONARY FIBROSIS [None]
